FAERS Safety Report 17038977 (Version 1)
Quarter: 2019Q4

REPORT INFORMATION
  Report Type: Spontaneous
  Country: US (occurrence: US)
  Receive Date: 20191115
  Receipt Date: 20191115
  Transmission Date: 20200122
  Serious: No
  Sender: FDA-Public Use
  Company Number: US-BAUSCH-BL-2019-060342

PATIENT
  Age: 72 Year
  Sex: Female

DRUGS (1)
  1. MOVIPREP [Suspect]
     Active Substance: ASCORBIC ACID\POLYETHYLENE GLYCOL 3350\POTASSIUM CHLORIDE\SODIUM ASCORBATE\SODIUM CHLORIDE\SODIUM SULFATE
     Indication: BOWEL PREPARATION
     Route: 065
     Dates: start: 20191104, end: 20191104

REACTIONS (9)
  - Pruritus [Unknown]
  - Urticaria [Unknown]
  - Tongue discolouration [Not Recovered/Not Resolved]
  - Erythema [Unknown]
  - Oropharyngeal discomfort [Not Recovered/Not Resolved]
  - Tongue injury [Not Recovered/Not Resolved]
  - Glossodynia [Not Recovered/Not Resolved]
  - Glossitis [Unknown]
  - Headache [Unknown]

NARRATIVE: CASE EVENT DATE: 20191104
